FAERS Safety Report 22640675 (Version 1)
Quarter: 2023Q2

REPORT INFORMATION
  Report Type: Spontaneous
  Country: US (occurrence: US)
  Receive Date: 20230626
  Receipt Date: 20230626
  Transmission Date: 20230722
  Serious: No
  Sender: FDA-Public Use
  Company Number: US-Accord-272448

PATIENT
  Age: 54 Year
  Sex: Male
  Weight: 136.08 kg

DRUGS (14)
  1. AMLODIPINE [Suspect]
     Active Substance: AMLODIPINE BESYLATE
     Indication: Product used for unknown indication
  2. MIFEPRISTONE [Suspect]
     Active Substance: MIFEPRISTONE
     Indication: Cushing^s syndrome
     Dosage: TITRATION DOSING
     Dates: start: 20211213, end: 20220109
  3. ASPIRIN [Concomitant]
     Active Substance: ASPIRIN
  4. INSULIN GLARGINE [Concomitant]
     Active Substance: INSULIN GLARGINE
  5. GLIMEPIRIDE [Concomitant]
     Active Substance: GLIMEPIRIDE
  6. LISINOPRIL [Concomitant]
     Active Substance: LISINOPRIL
  7. VITAMINS [Concomitant]
     Active Substance: VITAMINS
  8. METFORMIN [Concomitant]
     Active Substance: METFORMIN HYDROCHLORIDE
  9. METOPROLOL [Concomitant]
     Active Substance: METOPROLOL
  10. OMEPRAZOLE [Concomitant]
     Active Substance: OMEPRAZOLE
  11. ROSUVASTATIN [Concomitant]
     Active Substance: ROSUVASTATIN
  12. TRAMADOL [Concomitant]
     Active Substance: TRAMADOL
  13. VITAMIN D [Concomitant]
     Active Substance: VITAMIN D NOS
  14. ZINC [Concomitant]
     Active Substance: ZINC

REACTIONS (14)
  - Herpes zoster [Unknown]
  - Therapy interrupted [Unknown]
  - Mobility decreased [Unknown]
  - Hypoaesthesia [Unknown]
  - Urine odour abnormal [Not Recovered/Not Resolved]
  - Stress [Unknown]
  - Blood glucose increased [Unknown]
  - Spinal stenosis [Unknown]
  - Constipation [Not Recovered/Not Resolved]
  - Nausea [Unknown]
  - Malaise [Unknown]
  - Pruritus [Recovering/Resolving]
  - Thyroid disorder [Recovered/Resolved]
  - Blood pressure decreased [Recovering/Resolving]

NARRATIVE: CASE EVENT DATE: 20211213
